FAERS Safety Report 9166720 (Version 1)
Quarter: 2013Q1

REPORT INFORMATION
  Report Type: Spontaneous
  Country: US (occurrence: US)
  Receive Date: 20130316
  Receipt Date: 20130316
  Transmission Date: 20140127
  Serious: Yes (Hospitalization)
  Sender: FDA-Public Use
  Company Number: US-009507513-1303USA006489

PATIENT
  Age: 57 Year
  Sex: Female
  Weight: 64 kg

DRUGS (15)
  1. RIBAVIRIN [Suspect]
     Indication: CHRONIC HEPATITIS C
     Dosage: 800 MG DAILY
     Route: 048
     Dates: start: 20120623
  2. RIBAVIRIN [Suspect]
     Dosage: 400 MG DAILY
     Route: 048
     Dates: start: 20120720
  3. BOCEPREVIR [Suspect]
     Indication: CHRONIC HEPATITIS C
     Dosage: 2400 MG DAILY
     Route: 048
     Dates: start: 20120721
  4. PEGINTERFERON ALFA-2A [Suspect]
     Indication: CHRONIC HEPATITIS C
     Dosage: 180 MICROGRAM, QW
     Route: 058
     Dates: start: 20120623
  5. TOPAMAX [Concomitant]
  6. AMBIEN [Concomitant]
  7. ABILIFY [Concomitant]
  8. LEXAPRO [Concomitant]
  9. NEURONTIN [Concomitant]
  10. VISTARIL [Concomitant]
     Dosage: 150 MG, PRN
  11. LAMICTAL [Concomitant]
  12. ATIVAN [Concomitant]
     Dosage: 3 MG, PRN
  13. MOBIC [Concomitant]
  14. IMITREX (SUMATRIPTAN SUCCINATE) [Concomitant]
  15. RESTORIL (TEMAZEPAM) [Concomitant]

REACTIONS (3)
  - Anaemia [Recovered/Resolved]
  - Hypotension [Unknown]
  - Dizziness [Unknown]
